FAERS Safety Report 8372509-X (Version None)
Quarter: 2012Q2

REPORT INFORMATION
  Report Type: 
  Country: None (occurrence: None)
  Receive Date: 20120521
  Receipt Date: 20120511
  Transmission Date: 20120825
  Serious: Yes (Other)
  Sender: FDA-Public Use
  Company Number: PHEH2012US007613

PATIENT
  Sex: Male

DRUGS (2)
  1. TEGRETOL-XR [Suspect]
     Dosage: UNK UKN, UNK
     Route: 048
  2. CARBAMAZEPINE [Suspect]
     Dosage: UNK

REACTIONS (2)
  - CONVULSION [None]
  - DRUG INEFFECTIVE [None]
